FAERS Safety Report 15334152 (Version 1)
Quarter: 2018Q3

REPORT INFORMATION
  Report Type: Spontaneous
  Country: PL (occurrence: PL)
  Receive Date: 20180830
  Receipt Date: 20180830
  Transmission Date: 20181010
  Serious: Yes (Hospitalization)
  Sender: FDA-Public Use
  Company Number: PL-ROCHE-2177525

PATIENT
  Age: 51 Year

DRUGS (1)
  1. XOLAIR [Suspect]
     Active Substance: OMALIZUMAB
     Indication: ASTHMA
     Route: 065

REACTIONS (5)
  - Weight decreased [Unknown]
  - Renal failure [Unknown]
  - Splenomegaly [Unknown]
  - Neoplasm [Unknown]
  - Hepatomegaly [Unknown]
